FAERS Safety Report 9436530 (Version 1)
Quarter: 2013Q3

REPORT INFORMATION
  Report Type: Spontaneous
  Country: US (occurrence: US)
  Receive Date: 20130802
  Receipt Date: 20130802
  Transmission Date: 20140515
  Serious: No
  Sender: FDA-Public Use
  Company Number: US-OPTIMER-20130097

PATIENT
  Age: 54 Year
  Sex: Male
  Weight: 80.27 kg

DRUGS (2)
  1. DIFICID [Suspect]
     Indication: CLOSTRIDIUM DIFFICILE COLITIS
     Dosage: 200 MG, BID
     Route: 048
     Dates: start: 20130329, end: 20130330
  2. PULMICORT [Concomitant]
     Indication: ASTHMA
     Dosage: UNK, BID

REACTIONS (1)
  - Tinnitus [Recovering/Resolving]
